FAERS Safety Report 9921997 (Version 1)
Quarter: 2014Q1

REPORT INFORMATION
  Report Type: Spontaneous
  Country: US (occurrence: None)
  Receive Date: 20140221
  Receipt Date: 20140221
  Transmission Date: 20141002
  Serious: Yes (Life-Threatening)
  Sender: FDA-Public Use
  Company Number: None

PATIENT
  Age: 40 Year
  Sex: Male
  Weight: 56.7 kg

DRUGS (3)
  1. SUBOXONE [Suspect]
     Dosage: 8MG. STRIPS?1  1/2 FILMS DAILY ?12MG DAILY ?ONCE DAILY ?BILINGUALLY
     Dates: start: 201312
  2. ADVAIR [Concomitant]
  3. PROAIR [Concomitant]

REACTIONS (6)
  - Peritonsillar abscess [None]
  - Subcutaneous abscess [None]
  - Abscess rupture [None]
  - Pain [None]
  - Blood pressure increased [None]
  - Drug hypersensitivity [None]
